FAERS Safety Report 4939246-2 (Version None)
Quarter: 2006Q1

REPORT INFORMATION
  Report Type: 
  Country: None (occurrence: None)
  Receive Date: 20060309
  Receipt Date: 20060309
  Transmission Date: 20060701
  Serious: No
  Sender: FDA-Public Use
  Company Number: None

PATIENT
  Age: 54 Year
  Sex: Male

DRUGS (1)
  1. VIGAMOX [Suspect]
     Indication: KERATITIS FUNGAL
     Dosage: 1 GTT Q2H X 48H THEN Q3H X 3 DAYS THEN QID
     Route: 047

REACTIONS (2)
  - CORNEAL TRANSPLANT [None]
  - KERATITIS FUNGAL [None]
